FAERS Safety Report 8992846 (Version 1)
Quarter: 2013Q1

REPORT INFORMATION
  Report Type: Spontaneous
  Country: US (occurrence: US)
  Receive Date: 20130102
  Receipt Date: 20130102
  Transmission Date: 20140127
  Serious: Yes (Hospitalization)
  Sender: FDA-Public Use
  Company Number: US-BAYER-2012-136598

PATIENT
  Age: 44 Year
  Sex: Female

DRUGS (10)
  1. YASMIN [Suspect]
     Indication: HORMONE LEVEL ABNORMAL
  2. TENORMIN [Concomitant]
  3. TRICOR [Concomitant]
  4. ACTOS [Concomitant]
  5. NIASPAN [Concomitant]
  6. XANAX [Concomitant]
  7. AMBIEN [Concomitant]
  8. VICODIN [Concomitant]
  9. ANAPROX [Concomitant]
  10. OMACOR [Concomitant]

REACTIONS (2)
  - Deep vein thrombosis [None]
  - Pulmonary embolism [None]
